FAERS Safety Report 25251704 (Version 1)
Quarter: 2025Q2

REPORT INFORMATION
  Report Type: Spontaneous
  Country: CA (occurrence: CA)
  Receive Date: 20250429
  Receipt Date: 20250429
  Transmission Date: 20250717
  Serious: Yes (Other)
  Sender: PFIZER
  Company Number: CA-PFIZER INC-202500088549

PATIENT
  Age: 81 Year
  Sex: Female
  Weight: 69 kg

DRUGS (3)
  1. METHOTREXATE SODIUM [Suspect]
     Active Substance: METHOTREXATE SODIUM
     Dosage: 20 MG, WEEKLY
     Route: 058
  2. FOLIC ACID [Concomitant]
     Active Substance: FOLIC ACID
  3. CELEBREX [Concomitant]
     Active Substance: CELECOXIB

REACTIONS (2)
  - Cataract [Unknown]
  - Off label use [Unknown]
